FAERS Safety Report 17528274 (Version 1)
Quarter: 2020Q1

REPORT INFORMATION
  Report Type: Report from Study
  Country: None (occurrence: DE)
  Receive Date: 20200312
  Receipt Date: 20200312
  Transmission Date: 20200409
  Serious: Yes (Hospitalization, Other)
  Sender: FDA-Public Use
  Company Number: DE-ABBVIE-20K-062-3311024-00

PATIENT
  Sex: Male

DRUGS (2)
  1. HUMIRA [Suspect]
     Active Substance: ADALIMUMAB
     Dosage: EVERY 4-6 WEEKS
     Route: 058
     Dates: start: 2017, end: 2019
  2. HUMIRA [Suspect]
     Active Substance: ADALIMUMAB
     Indication: CROHN^S DISEASE
     Route: 058
     Dates: start: 20110215, end: 2017

REACTIONS (9)
  - Hospitalisation [Unknown]
  - Nephrolithiasis [Unknown]
  - Stoma creation [Not Recovered/Not Resolved]
  - Sepsis [Recovered/Resolved]
  - Peritonitis [Recovered/Resolved]
  - Weight decreased [Unknown]
  - Inflammatory marker increased [Unknown]
  - Renal disorder [Not Recovered/Not Resolved]
  - Procedural complication [Unknown]
